FAERS Safety Report 14315775 (Version 1)
Quarter: 2017Q4

REPORT INFORMATION
  Report Type: Spontaneous
  Country: US (occurrence: US)
  Receive Date: 20171221
  Receipt Date: 20171221
  Transmission Date: 20180321
  Serious: No
  Sender: FDA-Public Use
  Company Number: US-DRREDDYS-USA/USA/16/0085253

PATIENT
  Sex: Male

DRUGS (1)
  1. RISPERIDONE TABLETS [Suspect]
     Active Substance: RISPERIDONE
     Indication: PRODUCT USED FOR UNKNOWN INDICATION
     Route: 065
     Dates: end: 20140210

REACTIONS (2)
  - Gynaecomastia [Unknown]
  - Weight increased [Unknown]
